FAERS Safety Report 5717000-1 (Version None)
Quarter: 2008Q2

REPORT INFORMATION
  Report Type: 
  Country: None (occurrence: None)
  Receive Date: 20080424
  Receipt Date: 20080421
  Transmission Date: 20081010
  Serious: Yes (Death)
  Sender: FDA-Public Use
  Company Number: DK-ABBOTT-08P-044-0447638-02

PATIENT
  Sex: Female

DRUGS (2)
  1. RITONAVIR SOFT GELATIN CAPSULES [Suspect]
     Indication: HIV INFECTION
     Route: 048
     Dates: start: 20020211, end: 20040831
  2. AMPENAVIR [Concomitant]
     Indication: HIV INFECTION
     Route: 048
     Dates: start: 20031106, end: 20040831

REACTIONS (1)
  - DEATH [None]
